FAERS Safety Report 17022149 (Version 1)
Quarter: 2019Q4

REPORT INFORMATION
  Report Type: Spontaneous
  Country: US (occurrence: US)
  Receive Date: 20191008
  Receipt Date: 20191008
  Transmission Date: 20200122
  Serious: Yes (Hospitalization)
  Sender: FDA-Public Use
  Company Number: None

PATIENT
  Age: 60 Year
  Sex: Female

DRUGS (5)
  1. TYKERB [Concomitant]
     Active Substance: LAPATINIB DITOSYLATE
  2. PREGABALIN. [Concomitant]
     Active Substance: PREGABALIN
  3. HYDROMORPHONE [Concomitant]
     Active Substance: HYDROMORPHONE
  4. CAPECITABINE 500MG [Suspect]
     Active Substance: CAPECITABINE
     Indication: BREAST CANCER FEMALE
     Route: 048
     Dates: start: 20190608
  5. OLANZAPINE. [Concomitant]
     Active Substance: OLANZAPINE

REACTIONS (1)
  - Hospitalisation [None]

NARRATIVE: CASE EVENT DATE: 2019
